FAERS Safety Report 23791005 (Version 1)
Quarter: 2024Q2

REPORT INFORMATION
  Report Type: Spontaneous
  Country: US (occurrence: US)
  Receive Date: 20240427
  Receipt Date: 20240427
  Transmission Date: 20240716
  Serious: Yes (Life-Threatening, Hospitalization)
  Sender: FDA-Public Use
  Company Number: US-PRINSTON PHARMACEUTICAL INC.-2024PRN00185

PATIENT
  Age: 28 Year
  Sex: Male

DRUGS (1)
  1. VENLAFAXINE [Suspect]
     Active Substance: VENLAFAXINE HYDROCHLORIDE
     Indication: Suicide attempt
     Dosage: 60+ ^PILLS^
     Route: 048

REACTIONS (6)
  - Lactic acidosis [Unknown]
  - Metabolic acidosis [Unknown]
  - Respiratory acidosis [Unknown]
  - Suicide attempt [Recovered/Resolved]
  - Overdose [Recovered/Resolved]
  - Seizure [Recovered/Resolved]
